FAERS Safety Report 24902798 (Version 3)
Quarter: 2025Q1

REPORT INFORMATION
  Report Type: Report from Study
  Country: JP (occurrence: JP)
  Receive Date: 20250130
  Receipt Date: 20250320
  Transmission Date: 20250409
  Serious: Yes (Death, Other)
  Sender: TAKEDA
  Company Number: JP-TAKEDA-2025TJP001170

PATIENT
  Age: 57 Year
  Sex: Male
  Weight: 52.6 kg

DRUGS (15)
  1. MARIBAVIR [Suspect]
     Active Substance: MARIBAVIR
     Indication: Cytomegalovirus infection
     Dosage: 400 MILLIGRAM, BID
     Dates: start: 20241021, end: 20241109
  2. MARIBAVIR [Suspect]
     Active Substance: MARIBAVIR
     Dosage: 400 MILLIGRAM, BID
     Dates: start: 20241115, end: 20241121
  3. MARIBAVIR [Suspect]
     Active Substance: MARIBAVIR
     Dosage: 400 MILLIGRAM, BID
     Dates: start: 20241129, end: 20241212
  4. TACROLIMUS [Concomitant]
     Active Substance: TACROLIMUS
  5. MIYA-BM [Concomitant]
     Active Substance: CLOSTRIDIUM BUTYRICUM SPORES STRAIN M-55
  6. ATOVAQUONE [Concomitant]
     Active Substance: ATOVAQUONE
  7. TRAZODONE HYDROCHLORIDE [Concomitant]
     Active Substance: TRAZODONE HYDROCHLORIDE
  8. VORICONAZOLE [Concomitant]
     Active Substance: VORICONAZOLE
  9. RABEPRAZOLE SODIUM [Concomitant]
     Active Substance: RABEPRAZOLE SODIUM
  10. ACYCLOVIR [Concomitant]
     Active Substance: ACYCLOVIR
  11. FEBUXOSTAT [Concomitant]
     Active Substance: FEBUXOSTAT
  12. MEROPENEM [Concomitant]
     Active Substance: MEROPENEM
  13. VANCOMYCIN [Concomitant]
     Active Substance: VANCOMYCIN
  14. NOXAFIL [Concomitant]
     Active Substance: POSACONAZOLE
  15. DOBUTAMINE [Concomitant]
     Active Substance: DOBUTAMINE HYDROCHLORIDE

REACTIONS (1)
  - Septic shock [Fatal]

NARRATIVE: CASE EVENT DATE: 20241211
